FAERS Safety Report 18908720 (Version 1)
Quarter: 2021Q1

REPORT INFORMATION
  Report Type: Spontaneous
  Country: CA (occurrence: CA)
  Receive Date: 20210218
  Receipt Date: 20210218
  Transmission Date: 20210420
  Serious: Yes (Other)
  Sender: FDA-Public Use
  Company Number: CA-PFIZER INC-2021153647

PATIENT
  Age: 20 Year
  Sex: Male

DRUGS (4)
  1. AZATHIOPRINE. [Suspect]
     Active Substance: AZATHIOPRINE
  2. METHOTREXATE SODIUM. [Suspect]
     Active Substance: METHOTREXATE SODIUM
     Indication: GRANULOMATOSIS WITH POLYANGIITIS
     Dosage: UNK
     Dates: start: 20201001, end: 2020
  3. LEFLUNOMIDE. [Suspect]
     Active Substance: LEFLUNOMIDE
  4. PREDNISONE. [Concomitant]
     Active Substance: PREDNISONE
     Dosage: 20 MG, 2X/DAY

REACTIONS (2)
  - Off label use [Unknown]
  - Hepatitis [Unknown]
